FAERS Safety Report 6892559-X (Version None)
Quarter: 2010Q3

REPORT INFORMATION
  Report Type: 
  Country: None (occurrence: None)
  Receive Date: 20100731
  Receipt Date: 20080627
  Transmission Date: 20110219
  Serious: No
  Sender: FDA-Public Use
  Company Number: US-PFIZER INC-2008053119

PATIENT
  Sex: Male
  Weight: 90.909 kg

DRUGS (5)
  1. NORVASC [Suspect]
     Indication: HYPERTENSION
     Route: 048
     Dates: start: 20060101
  2. LISINOPRIL [Concomitant]
     Indication: VENTRICULAR EXTRASYSTOLES
  3. LOPRESSOR [Concomitant]
     Indication: VENTRICULAR EXTRASYSTOLES
  4. LIPITOR [Concomitant]
     Indication: BLOOD CHOLESTEROL INCREASED
  5. ALLEGRA [Concomitant]

REACTIONS (1)
  - OEDEMA PERIPHERAL [None]
